FAERS Safety Report 9034622 (Version 1)
Quarter: 2013Q1

REPORT INFORMATION
  Report Type: Spontaneous
  Country: GB (occurrence: None)
  Receive Date: 20130115
  Receipt Date: 20130115
  Transmission Date: 20140127
  Serious: Yes (Hospitalization)
  Sender: FDA-Public Use
  Company Number: THQ2013A00093

PATIENT
  Age: 62 Year
  Sex: Male

DRUGS (15)
  1. LANSOPRAZOLE (LANSOPRAZOLE) [Suspect]
     Indication: PRODUCT USED FOR UNKNOWN INDICATION
     Dosage: 30  MG  (30 MG,  1 -  2)?UNK.
  2. AMOXICILLIN (AMOXICILLIN TRIHYDRATE) [Suspect]
     Indication: PRODUCT USED FOR UNKNOWN INDICATION
     Dosage: 1500  MG  (500  MG,  3 IN 1 D)?INTRAVENOUS?UNKNOWN  INDICATION?10/MAR/20114  -  10/MAR/2011
     Route: 042
     Dates: start: 20110310, end: 20110310
  3. CLARITHROMYCIN [Suspect]
     Indication: PRODUCT USED FOR UNKNOWN INDICATION
     Dosage: 1000  MG  (500  MG,  2 IN 1 D)?INTRAVENOUS?UNKNOWN  INDICATION?10/MAR/2011  -  10/MAR/2011
     Route: 042
     Dates: start: 20110310, end: 20110310
  4. FLUCLOXACILLIN [Suspect]
     Indication: PRODUCT USED FOR UNKNOWN INDICATION
     Dosage: 2000  MG  (500  MG,  4 IN 1 D)?PER ORAL?UNKNOWN  INDICATION?29/MAR/2011  -  30/MAR/2011  (1  DAYS)
     Route: 048
     Dates: start: 20110329, end: 20110330
  5. LEVOFLOXACIN [Suspect]
     Indication: PRODUCT USED FOR UNKNOWN INDICATION
     Dosage: 1000  MG  (500  MG,  2 IN 1 D)?INTRAVENOUS?UNKNOWN  INDICATION?11/MAR/2011  -  21/MAR/2011  (10 DAYS)
     Route: 042
     Dates: start: 20110311, end: 20110321
  6. MEROPENEM [Suspect]
     Indication: PRODUCT USED FOR UNKNOWN INDICATION
     Dosage: 3  GM  (1 GM,  3 IN 1 D)?UNKNOWN  INDICATION?12/MAR/2011  -  21/MAR/2011  (9 DAYS)
     Dates: start: 20110312, end: 20110321
  7. TEICOPLANIN [Suspect]
     Indication: PRODUCT USED FOR UNKNOWN INDICATION
     Dosage: 1200  MG  STAT  THEN  800 MG IN THE MORNING  (800 MG, 1 IN 1 D)?UNKNOWN  INDICATION?10/MAR/2011  -  13/MAR/2011  (3 DAYS)
     Dates: start: 20110310, end: 20110313
  8. ERYTHROMYCIN [Suspect]
     Indication: PRODUCT USED FOR UNKNOWN INDICATION
     Dosage: 375  MG  (125  MG,  3 IN 1 D)?INTRAVENOUS?UNKNOWN  INDICATION?14/MAR/2011  -  17/MAR/2011  (3 DAYS)?
     Route: 042
     Dates: start: 20110314, end: 20110317
  9. LOPERAMIDE [Suspect]
  10. HYOSCINE BUTYLBROMIDE [Suspect]
  11. FLUOXETINE [Suspect]
  12. PARACETAMOL [Suspect]
  13. FUROSEMIDE [Suspect]
  14. SENNA (SENNA ALEXANDRINA) [Suspect]
  15. FERROUS SULPHATE (FERROUS SULFATE) [Suspect]

REACTIONS (1)
  - Clostridial infection [None]
